FAERS Safety Report 20832190 (Version 1)
Quarter: 2022Q2

REPORT INFORMATION
  Report Type: Spontaneous
  Country: US (occurrence: US)
  Receive Date: 20220516
  Receipt Date: 20220516
  Transmission Date: 20220721
  Serious: No
  Sender: FDA-Public Use
  Company Number: US-BRISTOL-MYERS SQUIBB COMPANY-2022-024083

PATIENT
  Age: 74 Year
  Sex: Male

DRUGS (1)
  1. REVLIMID [Suspect]
     Active Substance: LENALIDOMIDE
     Indication: Plasma cell myeloma
     Dosage: FREQ: DAILY 21DAYS, EVERY 28 DAYS
     Route: 048
     Dates: start: 20201209

REACTIONS (2)
  - Diarrhoea [Recovered/Resolved]
  - Vitamin B12 decreased [Not Recovered/Not Resolved]
